FAERS Safety Report 15006925 (Version 7)
Quarter: 2019Q2

REPORT INFORMATION
  Report Type: Report from Study
  Country: RO (occurrence: RO)
  Receive Date: 20180613
  Receipt Date: 20190523
  Transmission Date: 20190711
  Serious: Yes (Life-Threatening, Hospitalization)
  Sender: FDA-Public Use
  Company Number: RO-JNJFOC-20180611767

PATIENT
  Age: 62 Year
  Sex: Female
  Weight: 90 kg

DRUGS (21)
  1. DEXAMETHASONE. [Concomitant]
     Active Substance: DEXAMETHASONE
     Indication: PLASMA CELL MYELOMA
     Route: 048
     Dates: start: 20180129
  2. MILURIT [Concomitant]
     Active Substance: ALLOPURINOL
     Route: 065
     Dates: start: 20180126
  3. SINGULAIR [Concomitant]
     Active Substance: MONTELUKAST SODIUM
     Route: 048
     Dates: start: 20180129
  4. CARVEDILOL. [Concomitant]
     Active Substance: CARVEDILOL
     Indication: PULMONARY OEDEMA
     Route: 065
     Dates: start: 20160601
  5. CARFILZOMIB [Suspect]
     Active Substance: CARFILZOMIB
     Indication: PLASMA CELL MYELOMA
     Route: 042
     Dates: start: 20180626
  6. KARBIS [Concomitant]
     Active Substance: CANDESARTAN CILEXETIL
     Indication: PULMONARY OEDEMA
     Route: 065
     Dates: start: 20160601
  7. SINTROM [Concomitant]
     Active Substance: ACENOCOUMAROL
     Indication: PULMONARY OEDEMA
     Route: 065
     Dates: start: 20161001
  8. TRAMADOL. [Concomitant]
     Active Substance: TRAMADOL
     Route: 065
     Dates: start: 20170901
  9. DIGOXIN. [Concomitant]
     Active Substance: DIGOXIN
     Indication: PULMONARY OEDEMA
     Dosage: 1F, UNK
     Route: 042
     Dates: start: 20160601
  10. CLARITIN [Concomitant]
     Active Substance: LORATADINE
     Route: 048
     Dates: start: 20180129
  11. CARFILZOMIB [Suspect]
     Active Substance: CARFILZOMIB
     Indication: PLASMA CELL MYELOMA
     Route: 042
     Dates: start: 20180129
  12. BISEPTOL [Concomitant]
     Active Substance: SULFAMETHOXAZOLE\TRIMETHOPRIM
     Route: 065
     Dates: start: 20180126
  13. ASPENTER [Concomitant]
     Active Substance: ASPIRIN
     Route: 065
     Dates: start: 20180126
  14. PARACETAMOL [Concomitant]
     Active Substance: ACETAMINOPHEN
     Route: 048
     Dates: start: 20180129
  15. NOLPAZA [Concomitant]
     Active Substance: PANTOPRAZOLE SODIUM
     Route: 065
     Dates: start: 20180126
  16. SPIRONOLACTONA [Concomitant]
     Active Substance: SPIRONOLACTONE
     Route: 065
     Dates: start: 20160601
  17. CLARITINE [Concomitant]
     Active Substance: LORATADINE
     Route: 048
     Dates: start: 20180129
  18. DARATUMUMAB [Suspect]
     Active Substance: DARATUMUMAB
     Indication: PLASMA CELL MYELOMA
     Route: 042
     Dates: start: 20180129, end: 20180605
  19. NACL [Concomitant]
     Active Substance: SODIUM CHLORIDE
     Route: 042
     Dates: start: 20180129
  20. CLARITIN [Concomitant]
     Active Substance: LORATADINE
     Route: 048
     Dates: start: 20180212
  21. ACYCLOVIR. [Concomitant]
     Active Substance: ACYCLOVIR
     Route: 065
     Dates: start: 20180126

REACTIONS (1)
  - Pulmonary oedema [Recovered/Resolved]

NARRATIVE: CASE EVENT DATE: 20180605
